FAERS Safety Report 8859522 (Version 2)
Quarter: 2012Q4

REPORT INFORMATION
  Report Type: Report from Study
  Country: PL (occurrence: PL)
  Receive Date: 20121024
  Receipt Date: 20121105
  Transmission Date: 20130627
  Serious: Yes (Hospitalization, Other)
  Sender: FDA-Public Use
  Company Number: PL-BRISTOL-MYERS SQUIBB COMPANY-17045154

PATIENT
  Age: 66 Year
  Sex: Female

DRUGS (6)
  1. BLINDED: SAXAGLIPTIN [Suspect]
     Indication: TYPE 2 DIABETES MELLITUS
     Dates: start: 20100927
  2. METFORMAX [Suspect]
     Indication: TYPE 2 DIABETES MELLITUS
  3. NOVOMIX [Suspect]
     Indication: TYPE 2 DIABETES MELLITUS
     Dosage: Formulation-Novomix30
  4. BLINDED: PLACEBO [Suspect]
     Indication: TYPE 2 DIABETES MELLITUS
     Dates: start: 20100927
  5. ALEVE [Suspect]
  6. ASPIRIN [Concomitant]

REACTIONS (2)
  - Angioedema [Recovered/Resolved]
  - Anxiety [None]
